FAERS Safety Report 18525714 (Version 4)
Quarter: 2022Q2

REPORT INFORMATION
  Report Type: Spontaneous
  Country: CA (occurrence: CA)
  Receive Date: 20201119
  Receipt Date: 20220622
  Transmission Date: 20220721
  Serious: Yes (Other)
  Sender: FDA-Public Use
  Company Number: CA-SAMSUNG BIOEPIS-SB-2020-34473

PATIENT
  Age: 31 Year
  Sex: Male
  Weight: 69 kg

DRUGS (4)
  1. INFLIXIMAB [Suspect]
     Active Substance: INFLIXIMAB
     Indication: Colitis ulcerative
     Route: 042
  2. ACETAMINOPHEN [Concomitant]
     Active Substance: ACETAMINOPHEN
     Indication: Premedication
     Route: 048
  3. DIPHENHYDRAMINE [Concomitant]
     Active Substance: DIPHENHYDRAMINE
     Indication: Premedication
     Route: 042
  4. HYDROCORTISONE [Concomitant]
     Active Substance: HYDROCORTISONE
     Indication: Premedication
     Route: 042

REACTIONS (10)
  - Condition aggravated [Unknown]
  - Injection site streaking [Unknown]
  - Paraesthesia [Unknown]
  - Nodule [Unknown]
  - Weight decreased [Unknown]
  - Weight increased [Unknown]
  - Malaise [Unknown]
  - Drug level decreased [Unknown]
  - Intentional product use issue [Unknown]
  - Off label use [Unknown]
